FAERS Safety Report 16989034 (Version 1)
Quarter: 2019Q4

REPORT INFORMATION
  Report Type: Spontaneous
  Country: BR (occurrence: BR)
  Receive Date: 20191104
  Receipt Date: 20191104
  Transmission Date: 20200122
  Serious: Yes (Hospitalization, Other)
  Sender: FDA-Public Use
  Company Number: BR-CELGENEUS-BRA-20191003614

PATIENT
  Age: 85 Year
  Sex: Female

DRUGS (1)
  1. VIDAZA [Suspect]
     Active Substance: AZACITIDINE
     Indication: MYELODYSPLASTIC SYNDROME
     Dosage: 100 MILLIGRAM
     Route: 065
     Dates: start: 20180710

REACTIONS (7)
  - Blast cell count increased [Unknown]
  - Injection site haematoma [Recovering/Resolving]
  - Platelet count decreased [Unknown]
  - Pruritus [Recovering/Resolving]
  - Myelodysplastic syndrome [Unknown]
  - Drug ineffective [Unknown]
  - Haemorrhage [Recovered/Resolved]

NARRATIVE: CASE EVENT DATE: 201910
